FAERS Safety Report 16009526 (Version 3)
Quarter: 2019Q3

REPORT INFORMATION
  Report Type: Report from Study
  Country: US (occurrence: US)
  Receive Date: 20190225
  Receipt Date: 20190704
  Transmission Date: 20191004
  Serious: No
  Sender: FDA-Public Use
  Company Number: PHEH2019US007891

PATIENT
  Sex: Female

DRUGS (2)
  1. COREG [Suspect]
     Active Substance: CARVEDILOL
     Indication: PRODUCT USED FOR UNKNOWN INDICATION
     Route: 065
  2. ENTRESTO [Suspect]
     Active Substance: SACUBITRIL\VALSARTAN
     Indication: CARDIAC FAILURE
     Dosage: 1DF (24/26) MG BID
     Route: 048

REACTIONS (5)
  - Vision blurred [Unknown]
  - Blood pressure decreased [Unknown]
  - Weight fluctuation [Unknown]
  - Dizziness [Unknown]
  - Headache [Unknown]
